FAERS Safety Report 5456541-1 (Version None)
Quarter: 2007Q3

REPORT INFORMATION
  Report Type: 
  Country: None (occurrence: None)
  Receive Date: 20070918
  Receipt Date: 20070910
  Transmission Date: 20080115
  Serious: Yes (Other)
  Sender: FDA-Public Use
  Company Number: A0682245A

PATIENT
  Age: 71 Year
  Sex: Male

DRUGS (7)
  1. AVANDIA [Suspect]
     Dosage: 4MG IN THE MORNING
  2. METFORMIN HCL [Suspect]
     Dosage: 500MG SEE DOSAGE TEXT
  3. GLYBURIDE [Concomitant]
  4. AVAPRO [Concomitant]
     Dosage: 300MG IN THE MORNING
  5. NORVASC [Concomitant]
  6. ASPIRIN [Concomitant]
  7. CRESTOR [Concomitant]
     Dosage: 20MG IN THE MORNING

REACTIONS (3)
  - DYSPNOEA [None]
  - HYPOGLYCAEMIA [None]
  - TREATMENT NONCOMPLIANCE [None]
